FAERS Safety Report 7962991 (Version 4)
Quarter: 2015Q1

REPORT INFORMATION
  Report Type: Spontaneous
  Country: US (occurrence: US)
  Receive Date: 20110526
  Receipt Date: 20150218
  Transmission Date: 20150721
  Serious: Yes (Life-Threatening, Hospitalization, Congenital Anomaly, Other)
  Sender: FDA-Public Use
  Company Number: US-PFIZER INC-2011105820

PATIENT
  Sex: Female
  Weight: 3 kg

DRUGS (38)
  1. LORTAB [Concomitant]
     Active Substance: ACETAMINOPHEN\HYDROCODONE BITARTRATE
     Dosage: UNK
     Route: 064
     Dates: start: 20051021
  2. UNASYN [Concomitant]
     Active Substance: AMPICILLIN SODIUM\SULBACTAM SODIUM
     Indication: LEUKOCYTOSIS
  3. DEMEROL [Concomitant]
     Active Substance: MEPERIDINE HYDROCHLORIDE
     Indication: BANDAEMIA
  4. TYLENOL [Concomitant]
     Active Substance: ACETAMINOPHEN
     Dosage: AS NEEDED
     Route: 064
  5. PROMETHAZINE [Concomitant]
     Active Substance: PROMETHAZINE\PROMETHAZINE HYDROCHLORIDE
     Dosage: 25 MG, UNK
     Route: 064
     Dates: start: 20060117
  6. EFFEXOR [Suspect]
     Active Substance: VENLAFAXINE HYDROCHLORIDE
     Indication: DEPRESSION
  7. ZITHROMAX [Concomitant]
     Active Substance: AZITHROMYCIN DIHYDRATE
     Dosage: UNK
     Route: 064
     Dates: start: 20051021
  8. UNASYN [Concomitant]
     Active Substance: AMPICILLIN SODIUM\SULBACTAM SODIUM
     Indication: PHARYNGITIS
     Dosage: UNK
     Route: 064
     Dates: start: 20051021
  9. PREDNISONE. [Concomitant]
     Active Substance: PREDNISONE
     Dosage: 5 MG, UNK
     Route: 064
     Dates: start: 20051023
  10. BUTALBITAL, ACETAMINOPHEN, AND CAFFEINE [Concomitant]
     Active Substance: ACETAMINOPHEN\BUTALBITAL\CAFFEINE
     Dosage: UNK
     Route: 064
     Dates: start: 20060117, end: 20060422
  11. LORTAB [Concomitant]
     Active Substance: ACETAMINOPHEN\HYDROCODONE BITARTRATE
     Dosage: UNK
     Route: 064
  12. ZOFRAN [Concomitant]
     Active Substance: ONDANSETRON HYDROCHLORIDE
     Dosage: 8 MG, UNK
     Route: 064
     Dates: start: 20051010
  13. DECADRON [Concomitant]
     Active Substance: DEXAMETHASONE
     Indication: PHARYNGITIS
     Dosage: UNK
     Route: 064
     Dates: start: 20051021
  14. DECADRON [Concomitant]
     Active Substance: DEXAMETHASONE
     Indication: BANDAEMIA
  15. HYDROCODONE W/ACETAMINOPHEN [Concomitant]
     Active Substance: ACETAMINOPHEN\HYDROCODONE BITARTRATE
     Dosage: 500 MG, UNK
     Route: 064
     Dates: start: 20051023
  16. EFFEXOR [Suspect]
     Active Substance: VENLAFAXINE HYDROCHLORIDE
     Indication: ANXIETY
     Dosage: 150 MG, DAILY
     Route: 064
     Dates: start: 2000, end: 2010
  17. VENLAFAXINE HCL [Suspect]
     Active Substance: VENLAFAXINE HYDROCHLORIDE
     Indication: ANXIETY
     Dosage: 150 MG, DAILY
     Route: 064
     Dates: start: 2000, end: 2010
  18. PRENATAL VITAMINS [Concomitant]
     Active Substance: VITAMINS
     Dosage: UNK
     Route: 064
     Dates: start: 20051021
  19. UNASYN [Concomitant]
     Active Substance: AMPICILLIN SODIUM\SULBACTAM SODIUM
     Indication: BANDAEMIA
  20. DECADRON [Concomitant]
     Active Substance: DEXAMETHASONE
     Indication: LEUKOCYTOSIS
  21. PHENERGAN [Concomitant]
     Active Substance: PROMETHAZINE HYDROCHLORIDE
     Indication: PHARYNGITIS
     Dosage: 25 MG, UNK
     Route: 064
     Dates: start: 20051021, end: 20060117
  22. PHENERGAN [Concomitant]
     Active Substance: PROMETHAZINE HYDROCHLORIDE
     Indication: BANDAEMIA
  23. LEVAQUIN [Concomitant]
     Active Substance: LEVOFLOXACIN
     Indication: BANDAEMIA
  24. PROMETHAZINE HYDROCHLORIDE. [Concomitant]
     Active Substance: PROMETHAZINE HYDROCHLORIDE
     Dosage: UNK
     Route: 064
  25. LIDOCAINE. [Concomitant]
     Active Substance: LIDOCAINE
     Dosage: UNK
     Route: 064
     Dates: start: 20051021
  26. DEMEROL [Concomitant]
     Active Substance: MEPERIDINE HYDROCHLORIDE
     Indication: PHARYNGITIS
     Dosage: UNK
     Route: 064
     Dates: start: 20051021
  27. PHENERGAN [Concomitant]
     Active Substance: PROMETHAZINE HYDROCHLORIDE
     Indication: LEUKOCYTOSIS
  28. LEVAQUIN [Concomitant]
     Active Substance: LEVOFLOXACIN
     Indication: PHARYNGITIS
     Dosage: 500 MG, UNK
     Route: 064
     Dates: start: 20051021, end: 20051028
  29. AMPICILLIN SODIUM W/SULBACTAM SODIUM [Concomitant]
     Active Substance: AMPICILLIN SODIUM\SULBACTAM SODIUM
     Dosage: UNK
     Route: 064
  30. EFFEXOR XR [Suspect]
     Active Substance: VENLAFAXINE HYDROCHLORIDE
     Indication: ANXIETY
     Dosage: 150 MG, 1X/DAY
     Route: 064
  31. LEVAQUIN [Concomitant]
     Active Substance: LEVOFLOXACIN
     Indication: LEUKOCYTOSIS
  32. AZITHROMYCIN [Concomitant]
     Active Substance: AZITHROMYCIN ANHYDROUS
     Dosage: 250 MG, UNK
     Route: 064
     Dates: start: 20060106
  33. AMOXICILLIN. [Concomitant]
     Active Substance: AMOXICILLIN
     Dosage: 500 MG, UNK
     Route: 064
     Dates: start: 20060423
  34. EFFEXOR XR [Suspect]
     Active Substance: VENLAFAXINE HYDROCHLORIDE
     Indication: DEPRESSION
  35. VENLAFAXINE HCL [Suspect]
     Active Substance: VENLAFAXINE HYDROCHLORIDE
     Indication: DEPRESSION
  36. MOTRIN [Concomitant]
     Active Substance: IBUPROFEN
     Dosage: UNK
     Route: 064
  37. DEMEROL [Concomitant]
     Active Substance: MEPERIDINE HYDROCHLORIDE
     Indication: LEUKOCYTOSIS
  38. LOPRESSOR [Concomitant]
     Active Substance: METOPROLOL TARTRATE
     Dosage: 50 MG, 2X/DAY
     Route: 064
     Dates: start: 20060509

REACTIONS (24)
  - Right atrial dilatation [Unknown]
  - Tricuspid valve incompetence [Unknown]
  - Shone complex [Unknown]
  - Coarctation of the aorta [Unknown]
  - Gastrooesophageal reflux disease [Unknown]
  - Foetal exposure during pregnancy [Unknown]
  - Ventricular septal defect [Unknown]
  - Rotavirus infection [Recovered/Resolved]
  - Acute tonsillitis [Unknown]
  - Otitis media acute [Recovered/Resolved]
  - Pyrexia [Unknown]
  - Atrial septal defect [Unknown]
  - Liver disorder [Unknown]
  - Teething [Unknown]
  - Patent ductus arteriosus [Unknown]
  - Ventricular hypertrophy [Unknown]
  - Gastroenteritis [Unknown]
  - Cerumen impaction [Unknown]
  - Failure to thrive [Recovering/Resolving]
  - Hypoplastic left heart syndrome [Unknown]
  - Rash [Unknown]
  - Dilatation ventricular [Unknown]
  - Upper respiratory tract infection [Unknown]
  - Dysphagia [Unknown]

NARRATIVE: CASE EVENT DATE: 20060509
